FAERS Safety Report 5309614-8 (Version None)
Quarter: 2007Q2

REPORT INFORMATION
  Report Type: 
  Country: None (occurrence: None)
  Receive Date: 20070427
  Receipt Date: 20070412
  Transmission Date: 20071010
  Serious: Yes (Hospitalization, Other)
  Sender: FDA-Public Use
  Company Number: CA-ELI_LILLY_AND_COMPANY-CA200704003555

PATIENT
  Sex: Female

DRUGS (1)
  1. HUMULIN N [Suspect]
     Dosage: UNK, UNK

REACTIONS (2)
  - EXPIRED DRUG ADMINISTERED [None]
  - INTENTIONAL OVERDOSE [None]
